FAERS Safety Report 21149250 (Version 1)
Quarter: 2022Q3

REPORT INFORMATION
  Report Type: Spontaneous
  Country: US (occurrence: None)
  Receive Date: 20220729
  Receipt Date: 20220729
  Transmission Date: 20221027
  Serious: No
  Sender: FDA-Public Use
  Company Number: None

PATIENT
  Age: 59 Year
  Sex: Female

DRUGS (5)
  1. CITROMA [Suspect]
     Active Substance: MAGNESIUM CITRATE
     Indication: Bowel preparation
     Dates: start: 20220701, end: 20220727
  2. INSULIN NOS [Concomitant]
     Active Substance: INSULIN NOS
  3. MULTI WOMEN VITAMIN [Concomitant]
  4. CALCIUM [Concomitant]
     Active Substance: CALCIUM
  5. VITAMIN D [Concomitant]
     Active Substance: VITAMIN D NOS

REACTIONS (5)
  - Recalled product administered [None]
  - Nausea [None]
  - Abdominal pain upper [None]
  - Abdominal discomfort [None]
  - Suspected product contamination [None]

NARRATIVE: CASE EVENT DATE: 20220705
